FAERS Safety Report 4502893-6 (Version None)
Quarter: 2004Q4

REPORT INFORMATION
  Report Type: 
  Country: None (occurrence: None)
  Receive Date: 20041116
  Receipt Date: 20041116
  Transmission Date: 20050328
  Serious: Yes (Other)
  Sender: FDA-Public Use
  Company Number: None

PATIENT
  Sex: Male

DRUGS (1)
  1. AMITRYPTYLINE  50MG TABS [Suspect]

REACTIONS (4)
  - HYPERHIDROSIS [None]
  - MUSCLE SPASMS [None]
  - NIGHTMARE [None]
  - TREMOR [None]
